FAERS Safety Report 8031079-6 (Version None)
Quarter: 2012Q1

REPORT INFORMATION
  Report Type: 
  Country: None (occurrence: None)
  Receive Date: 20120109
  Receipt Date: 20120106
  Transmission Date: 20120608
  Serious: Yes (Hospitalization)
  Sender: FDA-Public Use
  Company Number: US-PFIZER INC-2012004941

PATIENT
  Sex: Male
  Weight: 79.4 kg

DRUGS (2)
  1. NORVASC [Suspect]
     Indication: HYPERTENSION
     Dosage: 10 MG, DAILY
  2. PROTONIX [Suspect]
     Indication: ABDOMINAL DISCOMFORT
     Dosage: 40MG, DAILY

REACTIONS (2)
  - ABDOMINAL DISCOMFORT [None]
  - PANCREATIC CYST [None]
